FAERS Safety Report 7922745-9 (Version None)
Quarter: 2011Q4

REPORT INFORMATION
  Report Type: 
  Country: None (occurrence: None)
  Receive Date: 20111117
  Receipt Date: 20110812
  Transmission Date: 20120403
  Serious: No
  Sender: FDA-Public Use
  Company Number: US-ALLERGAN-1110923US

PATIENT
  Age: 71 Year
  Sex: Female

DRUGS (3)
  1. XALATAN [Concomitant]
     Indication: PRODUCT USED FOR UNKNOWN INDICATION
  2. COMBIGAN [Suspect]
     Indication: DRY EYE
     Route: 047
  3. RESTASIS [Concomitant]
     Indication: DRY EYE

REACTIONS (3)
  - INCORRECT STORAGE OF DRUG [None]
  - FOREIGN BODY SENSATION IN EYES [None]
  - OCULAR HYPERAEMIA [None]
